FAERS Safety Report 13156186 (Version 2)
Quarter: 2017Q1

REPORT INFORMATION
  Report Type: Spontaneous
  Country: US (occurrence: US)
  Receive Date: 20170126
  Receipt Date: 20170322
  Transmission Date: 20170428
  Serious: Yes (Hospitalization, Other)
  Sender: FDA-Public Use
  Company Number: US-PURDUE-USA-2017-0136115

PATIENT
  Sex: Male

DRUGS (1)
  1. OXYCONTIN [Suspect]
     Active Substance: OXYCODONE HYDROCHLORIDE
     Indication: PAIN
     Dosage: 20 TO 80 MG, BID TO TID
     Route: 048
     Dates: start: 1998, end: 200504

REACTIONS (10)
  - Malaise [Recovered/Resolved]
  - Abasia [Recovered/Resolved]
  - Off label use [Recovered/Resolved]
  - Asthenia [Unknown]
  - Fall [Recovering/Resolving]
  - Parkinson^s disease [Unknown]
  - Dysstasia [Recovering/Resolving]
  - Confusional state [Unknown]
  - Unevaluable event [Recovering/Resolving]
  - Memory impairment [Unknown]

NARRATIVE: CASE EVENT DATE: 1999
